FAERS Safety Report 4407832-4 (Version None)
Quarter: 2004Q3

REPORT INFORMATION
  Report Type: 
  Country: None (occurrence: None)
  Receive Date: 20040726
  Receipt Date: 20040702
  Transmission Date: 20050211
  Serious: Yes (Death)
  Sender: FDA-Public Use
  Company Number: JP-GLAXOSMITHKLINE-B0337682A

PATIENT
  Age: 57 Year
  Sex: Male

DRUGS (20)
  1. LAMIVUDINE [Suspect]
     Indication: HEPATIC CIRRHOSIS
     Dosage: 100MG PER DAY
     Route: 048
     Dates: start: 20031111, end: 20031212
  2. FUROSEMIDE [Concomitant]
     Route: 048
  3. SPIRONOLACTONE [Concomitant]
     Route: 048
  4. REBAMIPIDE [Concomitant]
     Route: 048
  5. RABEPRAZOLE SODIUM [Concomitant]
     Route: 048
  6. MAGNESIUM OXIDE [Concomitant]
     Route: 048
  7. LACTITOL [Concomitant]
     Route: 048
  8. TRIAMTERENE [Concomitant]
     Route: 048
  9. AMMONIUM GLYCYRRHIZATE [Concomitant]
     Route: 042
  10. ALBUMIN (HUMAN) [Concomitant]
     Route: 042
  11. FUROSEMIDE [Concomitant]
     Route: 042
  12. DOPAMINE HCL [Concomitant]
     Route: 042
  13. MEROPENEM [Concomitant]
     Route: 042
  14. SODIUM BICARBONATE [Concomitant]
     Route: 042
  15. CALCIUM GLUCONATE [Concomitant]
     Route: 042
  16. METOCLOPRAMIDE HYDROCHLORIDE [Concomitant]
     Route: 042
  17. UNSPECIFIED MEDICATION [Concomitant]
     Route: 042
  18. FAMOTIDINE [Concomitant]
  19. HYDROXYZINE HCL [Concomitant]
  20. HALOPERIDOL [Concomitant]

REACTIONS (4)
  - INTESTINAL PERFORATION [None]
  - PERITONITIS [None]
  - RENAL FAILURE ACUTE [None]
  - URTICARIA [None]
